FAERS Safety Report 12113977 (Version 1)
Quarter: 2016Q1

REPORT INFORMATION
  Report Type: Spontaneous
  Country: US (occurrence: US)
  Receive Date: 20160225
  Receipt Date: 20160225
  Transmission Date: 20160526
  Serious: No
  Sender: FDA-Public Use
  Company Number: US-PFIZER INC-2016098205

PATIENT
  Age: 55 Year
  Sex: Female

DRUGS (2)
  1. PRISTIQ EXTENDED RELEASE [Suspect]
     Active Substance: DESVENLAFAXINE SUCCINATE
     Indication: DEPRESSION
     Dosage: 50MG PILL, ONCE A DAY
     Route: 048
  2. CLONIDINE. [Concomitant]
     Active Substance: CLONIDINE
     Indication: HYPERTENSION
     Dosage: 2MG PILL, THREE TIMES A DAY
     Route: 048
     Dates: start: 201601

REACTIONS (5)
  - Cold sweat [Unknown]
  - Depressed mood [Not Recovered/Not Resolved]
  - Crying [Unknown]
  - Hyperhidrosis [Not Recovered/Not Resolved]
  - Feeling abnormal [Recovered/Resolved]
